FAERS Safety Report 7787509-8 (Version None)
Quarter: 2011Q3

REPORT INFORMATION
  Report Type: 
  Country: None (occurrence: None)
  Receive Date: 20110929
  Receipt Date: 20110916
  Transmission Date: 20111222
  Serious: Yes (Hospitalization)
  Sender: FDA-Public Use
  Company Number: US-ENDO PHARMACEUTICALS INC.-PREV20110021

PATIENT
  Sex: Female

DRUGS (1)
  1. PREVIFEM [Suspect]
     Dosage: 1 TABLET
     Route: 048
     Dates: start: 20090101

REACTIONS (6)
  - ABDOMINAL PAIN [None]
  - DRUG INEFFECTIVE [None]
  - OVARIAN CYST RUPTURED [None]
  - OVARIAN CYST [None]
  - THROMBOSIS [None]
  - PREGNANCY ON ORAL CONTRACEPTIVE [None]
